FAERS Safety Report 17796636 (Version 3)
Quarter: 2020Q4

REPORT INFORMATION
  Report Type: Report from Study
  Country: JP (occurrence: JP)
  Receive Date: 20200518
  Receipt Date: 20201217
  Transmission Date: 20210113
  Serious: Yes (Hospitalization)
  Sender: FDA-Public Use
  Company Number: JP-ROCHE-2602337

PATIENT
  Age: 24 Year
  Sex: Female
  Weight: 38.5 kg

DRUGS (17)
  1. PHELLOBERIN [Concomitant]
     Active Substance: BERBERINE\GERANIUM
     Indication: PROPHYLAXIS
     Dosage: SINGLE USE
     Route: 048
     Dates: start: 20190605
  2. PROPETO [Concomitant]
     Active Substance: PETROLATUM
     Indication: ANGULAR CHEILITIS
     Dosage: PROPER QUANTITY AND SINGLE USE
     Route: 061
     Dates: start: 20191120
  3. ONETRAM [Concomitant]
     Active Substance: TRAMADOL HYDROCHLORIDE
     Indication: FIBROMYALGIA
     Route: 048
     Dates: start: 201809
  4. NOVAMIN (JAPAN) [Concomitant]
     Indication: FIBROMYALGIA
     Dosage: SINGLE USE
     Route: 048
     Dates: start: 201809
  5. RESTAMIN [Concomitant]
     Active Substance: DIPHENHYDRAMINE
     Indication: ECZEMA
     Dosage: PROPER QUANTITY AND SINGLE USE
     Route: 061
     Dates: start: 2017
  6. FAMOTIDINE D [Concomitant]
     Active Substance: FAMOTIDINE
     Indication: PROPHYLAXIS
     Dosage: BEGINNING OF DOSAGE DAY: TRIAL PREINITIATION
     Route: 048
  7. COLCHICINE. [Concomitant]
     Active Substance: COLCHICINE
     Indication: FAMILIAL MEDITERRANEAN FEVER
     Route: 048
     Dates: start: 20200408
  8. GENTAMICIN SULFATE. [Concomitant]
     Active Substance: GENTAMICIN SULFATE
     Indication: ANGULAR CHEILITIS
     Dosage: PROPER QUANTITY AND SINGLE USE
     Route: 061
     Dates: start: 20191120
  9. TRAMAL OD [Concomitant]
     Active Substance: TRAMADOL
     Indication: FIBROMYALGIA
     Route: 048
     Dates: start: 201809
  10. TERRA CORTRIL (JAPAN) [Concomitant]
     Indication: ECZEMA
     Dosage: PROPER QUANTITY AND SINGLE USE
     Route: 061
     Dates: start: 2017
  11. TOCILIZUMAB. [Suspect]
     Active Substance: TOCILIZUMAB
     Indication: FAMILIAL MEDITERRANEAN FEVER
     Route: 058
     Dates: start: 20190508
  12. LYRICA [Concomitant]
     Active Substance: PREGABALIN
     Indication: FIBROMYALGIA
     Route: 048
     Dates: start: 201809
  13. LAC-B [Concomitant]
     Active Substance: BIFIDOBACTERIUM SPP.
     Indication: PROPHYLAXIS
     Route: 048
     Dates: start: 20191120
  14. SYMPROIC [Concomitant]
     Active Substance: NALDEMEDINE
     Indication: FIBROMYALGIA
     Route: 048
     Dates: start: 201809
  15. FLAVITAN [Concomitant]
     Active Substance: FLAVIN ADENINE DINUCLEOTIDE
     Indication: PROPHYLAXIS
     Route: 048
     Dates: start: 20191120
  16. ALBUMIN TANNATE [Concomitant]
     Active Substance: ALBUMIN BOVINE\TANNIC ACID
     Indication: PROPHYLAXIS
     Dosage: SINGLE USE
     Route: 048
     Dates: start: 20190605
  17. TOCILIZUMAB. [Suspect]
     Active Substance: TOCILIZUMAB
     Route: 058
     Dates: start: 20191023, end: 20200429

REACTIONS (1)
  - Facial paralysis [Recovering/Resolving]

NARRATIVE: CASE EVENT DATE: 20200502
